FAERS Safety Report 9234799 (Version 1)
Quarter: 2013Q2

REPORT INFORMATION
  Report Type: Spontaneous
  Country: US (occurrence: US)
  Receive Date: 20130416
  Receipt Date: 20130416
  Transmission Date: 20140414
  Serious: Yes (Other)
  Sender: FDA-Public Use
  Company Number: US-BAXTER-2013BAX014495

PATIENT
  Sex: 0

DRUGS (4)
  1. IFOSFAMIDE FOR INJECTION [Suspect]
     Indication: SARCOMA
     Dosage: DAYS 1-3
  2. MESNA [Suspect]
     Indication: SARCOMA
     Dosage: DAYS 1-4
     Route: 042
  3. ADRIAMYCIN [Suspect]
     Indication: SARCOMA
     Dosage: DAYS 1-3
     Route: 042
  4. DACARBAZINE [Suspect]
     Indication: SARCOMA
     Dosage: DAYS 1-4
     Route: 042

REACTIONS (1)
  - Embolism venous [Unknown]
